FAERS Safety Report 7869565 (Version 2)
Quarter: 2013Q2

REPORT INFORMATION
  Report Type: Spontaneous
  Country: US (occurrence: US)
  Receive Date: 20110324
  Receipt Date: 20130520
  Transmission Date: 20140414
  Serious: Yes (Other)
  Sender: FDA-Public Use
  Company Number: US-ASTRAZENECA-2010SE15769

PATIENT
  Age: 59 Year
  Sex: Male

DRUGS (2)
  1. NEXIUM [Suspect]
     Indication: GASTROOESOPHAGEAL REFLUX DISEASE
     Route: 048
  2. NEXIUM [Suspect]
     Indication: DYSPEPSIA
     Route: 048

REACTIONS (6)
  - Neoplasm [Unknown]
  - Gastrooesophageal reflux disease [Unknown]
  - Dyspepsia [Unknown]
  - Anxiety [Unknown]
  - Abdominal discomfort [Unknown]
  - Drug dose omission [Unknown]
